FAERS Safety Report 5061853-X (Version None)
Quarter: 2006Q3

REPORT INFORMATION
  Report Type: 
  Country: None (occurrence: None)
  Receive Date: 20060726
  Receipt Date: 20060719
  Transmission Date: 20061208
  Serious: Yes (Other)
  Sender: FDA-Public Use
  Company Number: US-JNJFOC-20060704237

PATIENT
  Age: 50 Year
  Sex: Male

DRUGS (2)
  1. ULTRAM ER [Suspect]
     Indication: MUSCULOSKELETAL PAIN
     Route: 048
  2. ADVIL [Concomitant]
     Indication: MUSCULOSKELETAL PAIN

REACTIONS (2)
  - BLOOD PRESSURE INCREASED [None]
  - HALLUCINATION [None]
